FAERS Safety Report 10058143 (Version 1)
Quarter: 2014Q2

REPORT INFORMATION
  Report Type: Spontaneous
  Country: US (occurrence: None)
  Receive Date: 20140403
  Receipt Date: 20140403
  Transmission Date: 20141212
  Serious: Yes (Disabling)
  Sender: FDA-Public Use
  Company Number: None

PATIENT
  Age: 39 Year
  Sex: Female
  Weight: 62.14 kg

DRUGS (1)
  1. LEVAQUIN [Suspect]
     Indication: SINUSITIS
     Route: 048
     Dates: start: 20140324, end: 20140402

REACTIONS (6)
  - Anxiety [None]
  - Pruritus [None]
  - Constipation [None]
  - Insomnia [None]
  - Feeling jittery [None]
  - Pollakiuria [None]
